FAERS Safety Report 16189744 (Version 1)
Quarter: 2019Q2

REPORT INFORMATION
  Report Type: Spontaneous
  Country: IN (occurrence: IN)
  Receive Date: 20190412
  Receipt Date: 20190412
  Transmission Date: 20190711
  Serious: Yes (Hospitalization, Other)
  Sender: FDA-Public Use
  Company Number: IN-TORRENT-00002209

PATIENT
  Age: 6 Year
  Sex: Male

DRUGS (4)
  1. CLOBAZAM. [Concomitant]
     Active Substance: CLOBAZAM
     Indication: GENERALISED TONIC-CLONIC SEIZURE
     Dosage: UNKNOWN
  2. LACOSAMIDE. [Concomitant]
     Active Substance: LACOSAMIDE
     Indication: GENERALISED TONIC-CLONIC SEIZURE
     Dosage: UNKNOWN
  3. SODIUM VALPROATE [Concomitant]
     Active Substance: VALPROATE SODIUM
     Indication: GENERALISED TONIC-CLONIC SEIZURE
     Dosage: UNKNOWN
  4. LAMOTRIGINE. [Suspect]
     Active Substance: LAMOTRIGINE
     Indication: MYOCLONIC EPILEPSY
     Dosage: UNKNOWN

REACTIONS (3)
  - Condition aggravated [Recovered/Resolved]
  - Ataxia [Unknown]
  - Myoclonus [Recovered/Resolved]
